FAERS Safety Report 17889524 (Version 2)
Quarter: 2020Q3

REPORT INFORMATION
  Report Type: Spontaneous
  Country: None (occurrence: US)
  Receive Date: 20200612
  Receipt Date: 20200807
  Transmission Date: 20201103
  Serious: Yes (Other)
  Sender: FDA-Public Use
  Company Number: US-SUNOVION-2020SUN001719

PATIENT
  Age: 51 Year
  Sex: Male

DRUGS (8)
  1. APTIOM [Suspect]
     Active Substance: ESLICARBAZEPINE ACETATE
     Dosage: 800 MG
     Route: 048
  2. APTIOM [Suspect]
     Active Substance: ESLICARBAZEPINE ACETATE
     Dosage: TITRATION FROM UNKNOWN STARTING DOSE
     Route: 048
  3. EPIDIOLEX [Concomitant]
     Active Substance: CANNABIDIOL
     Dosage: UNK
     Route: 065
  4. ATIVAN [Concomitant]
     Active Substance: LORAZEPAM
     Dosage: UNK
     Route: 065
  5. APTIOM [Suspect]
     Active Substance: ESLICARBAZEPINE ACETATE
     Dosage: 1000 MG
     Route: 048
     Dates: end: 20200604
  6. BRIVIACT [Concomitant]
     Active Substance: BRIVARACETAM
     Dosage: UNK
     Route: 065
  7. LAMICTAL [Concomitant]
     Active Substance: LAMOTRIGINE
     Dosage: UNK
     Route: 065
  8. APTIOM [Suspect]
     Active Substance: ESLICARBAZEPINE ACETATE
     Indication: LENNOX-GASTAUT SYNDROME
     Dosage: 800 MG, QD
     Route: 048
     Dates: start: 20200605

REACTIONS (6)
  - Headache [Unknown]
  - Anxiety [Unknown]
  - Gait disturbance [Unknown]
  - Off label use [Unknown]
  - Seizure [Recovered/Resolved]
  - Fatigue [Unknown]

NARRATIVE: CASE EVENT DATE: 20200222
